FAERS Safety Report 19154868 (Version 4)
Quarter: 2021Q2

REPORT INFORMATION
  Report Type: Spontaneous
  Country: BR (occurrence: BR)
  Receive Date: 20210420
  Receipt Date: 20210602
  Transmission Date: 20210717
  Serious: Yes (Other)
  Sender: FDA-Public Use
  Company Number: BR-JNJFOC-20210426069

PATIENT
  Sex: Female

DRUGS (4)
  1. DUROGESIC D?TRANS [Suspect]
     Active Substance: FENTANYL
  2. DUROGESIC D?TRANS [Suspect]
     Active Substance: FENTANYL
  3. DUROGESIC D?TRANS [Suspect]
     Active Substance: FENTANYL
     Indication: PRODUCT USED FOR UNKNOWN INDICATION
     Dosage: 25.00 MCG/HR
     Route: 062
  4. DUROGESIC D?TRANS [Suspect]
     Active Substance: FENTANYL

REACTIONS (2)
  - Surgery [Unknown]
  - Product adhesion issue [Unknown]
